FAERS Safety Report 10271072 (Version 3)
Quarter: 2014Q3

REPORT INFORMATION
  Report Type: Report from Study
  Country: US (occurrence: US)
  Receive Date: 20140701
  Receipt Date: 20140812
  Transmission Date: 20150326
  Serious: Yes (Hospitalization, Other)
  Sender: FDA-Public Use
  Company Number: US-BRISTOL-MYERS SQUIBB COMPANY-21067913

PATIENT
  Age: 69 Year
  Sex: Female

DRUGS (1)
  1. ORENCIA [Suspect]
     Active Substance: ABATACEPT
     Dosage: ONLY 1 DOSE IN 2012?2013;INTERRUPTED IN APR-2014?LAST DOSE 18-JUN-2014
     Route: 042
     Dates: start: 2012

REACTIONS (6)
  - Pneumonia [Unknown]
  - Influenza [Unknown]
  - Arthralgia [Unknown]
  - Gallbladder disorder [Unknown]
  - Staphylococcal infection [Unknown]
  - Cardiac disorder [Unknown]

NARRATIVE: CASE EVENT DATE: 2012
